FAERS Safety Report 23239205 (Version 2)
Quarter: 2023Q4

REPORT INFORMATION
  Report Type: Report from Study
  Country: CA (occurrence: None)
  Receive Date: 20231129
  Receipt Date: 20231208
  Transmission Date: 20240110
  Serious: Yes (Other)
  Sender: FDA-Public Use
  Company Number: 2023A268528

PATIENT
  Age: 680 Month
  Sex: Female

DRUGS (5)
  1. TEZSPIRE [Suspect]
     Active Substance: TEZEPELUMAB-EKKO
     Indication: Asthma
     Route: 058
     Dates: start: 20230607
  2. XOLAIR [Concomitant]
     Active Substance: OMALIZUMAB
     Dosage: 5-6 YEARS Q2W
  3. SALBUTAMOL-NEBULIZER [Concomitant]
  4. VENTOLIN [Concomitant]
     Active Substance: ALBUTEROL SULFATE
  5. ZENHALE [Concomitant]
     Active Substance: FORMOTEROL FUMARATE\MOMETASONE FUROATE
     Dosage: 200MCG 1 PUFFS 2INTO DAILY OR 2 PUFFS 2INTO

REACTIONS (7)
  - Nephrolithiasis [Unknown]
  - Back pain [Unknown]
  - Musculoskeletal pain [Unknown]
  - Sacroiliitis [Unknown]
  - Asthma [Unknown]
  - Arthralgia [Unknown]
  - Muscular weakness [Unknown]

NARRATIVE: CASE EVENT DATE: 20230901
